FAERS Safety Report 16926139 (Version 2)
Quarter: 2020Q1

REPORT INFORMATION
  Report Type: Spontaneous
  Country: US (occurrence: US)
  Receive Date: 20191016
  Receipt Date: 20200304
  Transmission Date: 20200409
  Serious: No
  Sender: FDA-Public Use
  Company Number: US-VERTEX PHARMACEUTICALS-2019-009285

PATIENT
  Age: 10 Year
  Sex: Male
  Weight: 25 kg

DRUGS (12)
  1. VITAMIN E [Concomitant]
     Active Substance: .ALPHA.-TOCOPHEROL
  2. CREON [Concomitant]
     Active Substance: PANCRELIPASE AMYLASE\PANCRELIPASE LIPASE\PANCRELIPASE PROTEASE
  3. PROTONIX [OMEPRAZOLE] [Concomitant]
     Active Substance: OMEPRAZOLE
  4. MIRALAX [Concomitant]
     Active Substance: POLYETHYLENE GLYCOL 3350
     Dosage: UNK GRAM
  5. COPPER [Concomitant]
     Active Substance: COPPER
  6. VITAMIN D2 [Concomitant]
     Active Substance: ERGOCALCIFEROL
  7. URSODIOL. [Concomitant]
     Active Substance: URSODIOL
  8. PHYTONADIONE. [Concomitant]
     Active Substance: PHYTONADIONE
  9. SYMDEKO [Suspect]
     Active Substance: IVACAFTOR\TEZACAFTOR
     Indication: CYSTIC FIBROSIS
     Dosage: TEZACAFTOR 50 MG, IVACAFTOR 75 MG AM; IVACAFTOR 75 MG, PM
     Route: 048
     Dates: start: 20190805, end: 20190922
  10. PULMOZYME [Concomitant]
     Active Substance: DORNASE ALFA
  11. HYPERSAL [Concomitant]
     Active Substance: SODIUM CHLORIDE
  12. PROAIR HFA [Concomitant]
     Active Substance: ALBUTEROL SULFATE

REACTIONS (4)
  - Joint swelling [Recovered/Resolved]
  - Arthralgia [Recovered/Resolved]
  - Joint stiffness [Recovered/Resolved]
  - Asthenia [Recovered/Resolved]

NARRATIVE: CASE EVENT DATE: 20190902
